FAERS Safety Report 21682353 (Version 7)
Quarter: 2023Q2

REPORT INFORMATION
  Report Type: Report from Study
  Country: US (occurrence: US)
  Receive Date: 20221205
  Receipt Date: 20230531
  Transmission Date: 20230721
  Serious: Yes (Hospitalization, Other)
  Sender: FDA-Public Use
  Company Number: US-002147023-NVSC2022US282127

PATIENT
  Sex: Male

DRUGS (1)
  1. TABRECTA [Suspect]
     Active Substance: CAPMATINIB
     Indication: Product used for unknown indication
     Dosage: 200 MG, BID
     Route: 048

REACTIONS (6)
  - Peripheral swelling [Unknown]
  - Neuropathy peripheral [Unknown]
  - Malaise [Unknown]
  - Insomnia [Unknown]
  - Taste disorder [Unknown]
  - Nausea [Unknown]
